FAERS Safety Report 17159840 (Version 1)
Quarter: 2019Q4

REPORT INFORMATION
  Report Type: Spontaneous
  Country: US (occurrence: US)
  Receive Date: 20191216
  Receipt Date: 20191216
  Transmission Date: 20200122
  Serious: No
  Sender: FDA-Public Use
  Company Number: US-BIOGEN-2019BI00812612

PATIENT
  Age: 44 Year
  Sex: Female

DRUGS (2)
  1. TECFIDERA [Suspect]
     Active Substance: DIMETHYL FUMARATE
     Indication: MULTIPLE SCLEROSIS
     Dosage: X 7 DAYS
     Route: 048
     Dates: start: 20191114, end: 20191206
  2. TECFIDERA [Suspect]
     Active Substance: DIMETHYL FUMARATE
     Dosage: X 23 DAYS AFTER 120 MG DOSE
     Dates: start: 201911

REACTIONS (3)
  - Drug intolerance [Unknown]
  - Abdominal pain upper [Unknown]
  - Flushing [Unknown]

NARRATIVE: CASE EVENT DATE: 201911
